FAERS Safety Report 7647879-8 (Version None)
Quarter: 2011Q3

REPORT INFORMATION
  Report Type: 
  Country: None (occurrence: None)
  Receive Date: 20110801
  Receipt Date: 20110527
  Transmission Date: 20111222
  Serious: Yes (Other)
  Sender: FDA-Public Use
  Company Number: US-ABBOTT-11P-163-0804498-00

PATIENT
  Sex: Female
  Weight: 51.818 kg

DRUGS (9)
  1. PANCREATIN TRIPLE STRENGTH CAP [Suspect]
     Dosage: DAILY DOSE:  UNKNOWN, AS USED: 12000 UNIT, ONE TO TWO CAPSULES BEFORE MEALS
     Route: 048
     Dates: start: 20101201, end: 20110423
  2. FLUOROURACIL [Concomitant]
     Dosage: DAILY DOSE:  UNKNOWN, FREQUENCY: ONCE IN TWO WEEKS
     Route: 065
     Dates: start: 20101101
  3. OXALIPLATIN [Concomitant]
     Indication: PANCREATIC CARCINOMA
     Dosage: DAILY DOSE:  UNKNOWN, FREQUENCY: ONCE IN 2 WEEKS
     Route: 065
     Dates: start: 20101101
  4. PANCREATIN TRIPLE STRENGTH CAP [Suspect]
     Dosage: DAILY DOSE:  UNKNOWN, AS USED: 24000 UNIT, SIX CAPSULES PER MEAL, FOUR CAPSULES PER SNACK
     Route: 048
     Dates: start: 20101101, end: 20101101
  5. PANCREATIN TRIPLE STRENGTH CAP [Suspect]
     Indication: PANCREATIC CARCINOMA
     Dosage: DAILY DOSE:  UNKNOWN, AS USED: 12000 UNIT, WITH MEAL
     Route: 048
     Dates: start: 20100801, end: 20100801
  6. FLUOROURACIL [Concomitant]
     Indication: PANCREATIC CARCINOMA
     Dosage: DAILY DOSE:  UNKNOWN
     Route: 065
     Dates: start: 20100901, end: 20101001
  7. LOPERAMIDE HYDROCHLORIDE [Concomitant]
     Indication: PRODUCT USED FOR UNKNOWN INDICATION
     Dosage: DAILY DOSE:  UNKNOWN
     Route: 065
  8. FOLINIC ACID [Concomitant]
     Indication: PANCREATIC CARCINOMA
     Dosage: DAILY DOSE:  UNKNOWN, FREQUENCY: ONCE IN 2 WEEKS
     Route: 065
     Dates: start: 20101101
  9. CALCIUM CARBONATE [Concomitant]
     Indication: SUPPLEMENTATION THERAPY
     Dosage: DAILY DOSE:  UNKNOWN, 3 PER DAY
     Route: 065

REACTIONS (7)
  - MELAENA [None]
  - PAIN [None]
  - ABDOMINAL PAIN [None]
  - FIBROSING COLONOPATHY [None]
  - WEIGHT DECREASED [None]
  - NAUSEA [None]
  - DRUG INEFFECTIVE [None]
